FAERS Safety Report 9509903 (Version 1)
Quarter: 2013Q3

REPORT INFORMATION
  Report Type: Spontaneous
  Country: US (occurrence: US)
  Receive Date: 20130909
  Receipt Date: 20130909
  Transmission Date: 20140515
  Serious: Yes (Other)
  Sender: FDA-Public Use
  Company Number: US-BRISTOL-MYERS SQUIBB COMPANY-18809657

PATIENT
  Age: 14 Year
  Sex: Female
  Weight: 61.22 kg

DRUGS (6)
  1. ABILIFY [Suspect]
     Indication: DEPRESSION
  2. CELEXA [Suspect]
     Indication: DEPRESSION
  3. FLUOXETINE [Concomitant]
  4. RANITIDINE [Concomitant]
  5. LORATADINE [Concomitant]
  6. FIBER LAX [Concomitant]

REACTIONS (1)
  - Suicidal ideation [Unknown]
